FAERS Safety Report 13109011 (Version 1)
Quarter: 2017Q1

REPORT INFORMATION
  Report Type: Spontaneous
  Country: CN (occurrence: CN)
  Receive Date: 20170112
  Receipt Date: 20170112
  Transmission Date: 20170428
  Serious: Yes (Life-Threatening, Other)
  Sender: FDA-Public Use
  Company Number: CN-PFIZER INC-2017006595

PATIENT
  Age: 87 Year
  Sex: Male
  Weight: 70 kg

DRUGS (3)
  1. LIPITOR [Suspect]
     Active Substance: ATORVASTATIN CALCIUM
     Indication: LIPIDS ABNORMAL
     Dosage: 10 MG, 1X/DAY
     Route: 048
     Dates: start: 20161105, end: 20161107
  2. VALPROATE MAGNESIUM [Suspect]
     Active Substance: VALPROATE MAGNESIUM
     Indication: EPILEPSY
     Dosage: 0.25 G, 2X/DAY
     Route: 048
     Dates: start: 20161103, end: 20161107
  3. DALIFEN [Suspect]
     Active Substance: CEFIXIME
     Indication: INFECTION
     Dosage: 100 MG, 3X/DAY
     Route: 048
     Dates: start: 20161107, end: 20161107

REACTIONS (5)
  - Dermatitis exfoliative [Recovering/Resolving]
  - Rash [Recovered/Resolved]
  - Drug hypersensitivity [Recovered/Resolved]
  - Pruritus [Recovered/Resolved]
  - Flushing [Not Recovered/Not Resolved]

NARRATIVE: CASE EVENT DATE: 20161107
